FAERS Safety Report 9486574 (Version 1)
Quarter: 2013Q3

REPORT INFORMATION
  Report Type: Report from Study
  Country: US (occurrence: US)
  Receive Date: 20130829
  Receipt Date: 20130829
  Transmission Date: 20140515
  Serious: Yes (Other)
  Sender: FDA-Public Use
  Company Number: PHEH2013US018105

PATIENT
  Age: 70 Year
  Sex: Female

DRUGS (3)
  1. AFINITOR [Suspect]
     Indication: BREAST CANCER
     Dosage: 10 MG, DAILY
     Route: 048
     Dates: start: 20130718, end: 20130822
  2. CANASA [Concomitant]
  3. CURCUMIN [Concomitant]

REACTIONS (2)
  - Lymphoedema [Not Recovered/Not Resolved]
  - Periorbital oedema [Not Recovered/Not Resolved]
